FAERS Safety Report 7034794-6 (Version None)
Quarter: 2010Q4

REPORT INFORMATION
  Report Type: 
  Country: None (occurrence: None)
  Receive Date: 20101008
  Receipt Date: 20101005
  Transmission Date: 20110411
  Serious: Yes (Death, Hospitalization)
  Sender: FDA-Public Use
  Company Number: PHHY2010MX29053

PATIENT
  Sex: Female

DRUGS (1)
  1. FEMARA [Suspect]
     Indication: NEOPLASM MALIGNANT
     Dosage: 2.5 MG PER DAY
     Route: 048
     Dates: start: 20021101

REACTIONS (3)
  - DEVICE RELATED INFECTION [None]
  - MALIGNANT NEOPLASM PROGRESSION [None]
  - RESPIRATORY ARREST [None]
